FAERS Safety Report 10413170 (Version 1)
Quarter: 2014Q3

REPORT INFORMATION
  Report Type: Spontaneous
  Country: GB (occurrence: GB)
  Receive Date: 20140827
  Receipt Date: 20140827
  Transmission Date: 20150326
  Serious: Yes (Hospitalization, Other)
  Sender: FDA-Public Use
  Company Number: PHHY2014GB104457

PATIENT
  Age: 57 Year
  Sex: Male

DRUGS (11)
  1. AMIODARONE [Suspect]
     Active Substance: AMIODARONE
     Indication: ATRIAL FIBRILLATION
     Dosage: 900 MG, (900MG IN 500ML 5% GLUCOSE OVER 24 HOURS AT A RATE OF 21.4ML/ HOUR. DRUG WITHDRAWN WITH 20ML
     Route: 042
     Dates: start: 20140717
  2. ASPIRIN. [Concomitant]
     Active Substance: ASPIRIN
  3. SPIRONOLACTONE. [Concomitant]
     Active Substance: SPIRONOLACTONE
  4. DIGOXIN. [Concomitant]
     Active Substance: DIGOXIN
  5. MEROPENEM. [Concomitant]
     Active Substance: MEROPENEM
  6. FUROSEMIDE. [Concomitant]
     Active Substance: FUROSEMIDE
  7. LOSARTAN [Concomitant]
     Active Substance: LOSARTAN
  8. WARFARIN [Concomitant]
     Active Substance: WARFARIN
  9. LANSOPRAZOLE. [Concomitant]
     Active Substance: LANSOPRAZOLE
  10. VANCOMYCIN [Concomitant]
     Active Substance: VANCOMYCIN
  11. BISOPROLOL [Concomitant]
     Active Substance: BISOPROLOL

REACTIONS (7)
  - Infusion site phlebitis [Not Recovered/Not Resolved]
  - Incorrect route of drug administration [Unknown]
  - Infusion site pain [Unknown]
  - Infusion site discomfort [Unknown]
  - Infusion site erythema [Not Recovered/Not Resolved]
  - Infusion site extravasation [Unknown]
  - Infusion site swelling [Not Recovered/Not Resolved]

NARRATIVE: CASE EVENT DATE: 20140717
